FAERS Safety Report 7467993-X (Version None)
Quarter: 2011Q2

REPORT INFORMATION
  Report Type: 
  Country: None (occurrence: None)
  Receive Date: 20110509
  Receipt Date: 20110504
  Transmission Date: 20111010
  Serious: Yes (Death)
  Sender: FDA-Public Use
  Company Number: AU-ABBOTT-11P-008-0723740-00

PATIENT
  Age: 23 Year
  Sex: Female

DRUGS (7)
  1. VALPROIC ACID [Suspect]
     Indication: PRODUCT USED FOR UNKNOWN INDICATION
  2. NORDIAZEPAM [Suspect]
     Indication: PRODUCT USED FOR UNKNOWN INDICATION
  3. MORPHINE [Suspect]
     Indication: PRODUCT USED FOR UNKNOWN INDICATION
  4. TRAMADOL HCL [Interacting]
     Indication: PRODUCT USED FOR UNKNOWN INDICATION
  5. VENLAFAXINE [Interacting]
     Indication: PRODUCT USED FOR UNKNOWN INDICATION
  6. DIAZEPAM [Suspect]
     Indication: PRODUCT USED FOR UNKNOWN INDICATION
  7. CLONAZEPAM [Suspect]
     Indication: PRODUCT USED FOR UNKNOWN INDICATION

REACTIONS (2)
  - OVERDOSE [None]
  - DRUG INTERACTION [None]
